FAERS Safety Report 9150511 (Version 1)
Quarter: 2013Q1

REPORT INFORMATION
  Report Type: Spontaneous
  Country: US (occurrence: US)
  Receive Date: 20130308
  Receipt Date: 20130308
  Transmission Date: 20140127
  Serious: No
  Sender: FDA-Public Use
  Company Number: US-B.I. PHARMACEUTICALS,INC./RIDGEFIELD-2013-BI-05953BP

PATIENT
  Age: 50 None
  Sex: Female

DRUGS (9)
  1. SPIRIVA [Suspect]
     Indication: CHRONIC OBSTRUCTIVE PULMONARY DISEASE
     Dosage: 18 MCG
     Route: 055
     Dates: start: 201210
  2. SPIRIVA [Suspect]
     Route: 048
     Dates: start: 20130301, end: 20130301
  3. ALBUTEROL [Concomitant]
     Route: 055
  4. LIPITOR [Concomitant]
     Indication: BLOOD CHOLESTEROL INCREASED
     Route: 048
  5. WELLBUTRIN [Concomitant]
     Indication: SMOKING CESSATION THERAPY
     Route: 048
  6. DULERA [Concomitant]
     Route: 055
  7. VICODIN [Concomitant]
     Route: 048
  8. DUONEB [Concomitant]
     Route: 055
  9. SINGULAIR [Concomitant]
     Route: 048

REACTIONS (2)
  - Incorrect route of drug administration [Recovered/Resolved]
  - Vision blurred [Not Recovered/Not Resolved]
